FAERS Safety Report 21732383 (Version 2)
Quarter: 2023Q2

REPORT INFORMATION
  Report Type: Report from Study
  Country: DE (occurrence: DE)
  Receive Date: 20221215
  Receipt Date: 20230421
  Transmission Date: 20230721
  Serious: Yes (Other)
  Sender: FDA-Public Use
  Company Number: DE-002147023-NVSC2021DE234631

PATIENT
  Age: 6 Year
  Sex: Female
  Weight: 26.6 kg

DRUGS (6)
  1. ILARIS [Suspect]
     Active Substance: CANAKINUMAB
     Indication: Familial mediterranean fever
     Dosage: 80 MG (4 MG/KG), LAST TREATMENT OF ILARIS BEFORE ADVERSE EVENT WAS OCCURRED ON 24 OCT 2022
     Route: 058
     Dates: start: 20201218
  2. ILARIS [Suspect]
     Active Substance: CANAKINUMAB
     Dosage: UNK
     Route: 065
     Dates: start: 20221024
  3. ILARIS [Suspect]
     Active Substance: CANAKINUMAB
     Dosage: 80 MG
     Route: 058
  4. ILARIS [Suspect]
     Active Substance: CANAKINUMAB
     Dosage: 80 MG
     Route: 058
     Dates: start: 20230123
  5. COLCHICINE [Concomitant]
     Active Substance: COLCHICINE
     Indication: Product used for unknown indication
     Dosage: 1 MG, QD
     Route: 065
  6. COLCHICINE [Concomitant]
     Active Substance: COLCHICINE
     Dosage: 1 MG, QD
     Route: 048
     Dates: start: 20221102

REACTIONS (4)
  - Leukopenia [Not Recovered/Not Resolved]
  - Neutropenia [Not Recovered/Not Resolved]
  - Pyrexia [Recovered/Resolved]
  - Pharyngitis [Recovered/Resolved]

NARRATIVE: CASE EVENT DATE: 20210526
